FAERS Safety Report 6828104-4 (Version None)
Quarter: 2010Q3

REPORT INFORMATION
  Report Type: 
  Country: None (occurrence: None)
  Receive Date: 20100709
  Receipt Date: 20070130
  Transmission Date: 20110219
  Serious: No
  Sender: FDA-Public Use
  Company Number: US-PFIZER INC-2007008949

PATIENT
  Sex: Male
  Weight: 121.56 kg

DRUGS (7)
  1. CHANTIX [Suspect]
     Indication: SMOKING CESSATION THERAPY
     Route: 048
     Dates: start: 20070126
  2. TRILEPTAL [Concomitant]
  3. EFFEXOR [Concomitant]
  4. DOCUSATE [Concomitant]
  5. WELLBUTRIN [Concomitant]
  6. MULTI-VITAMINS [Concomitant]
  7. HYDROXYZINE [Concomitant]

REACTIONS (1)
  - TREMOR [None]
